FAERS Safety Report 10800449 (Version 1)
Quarter: 2015Q1

REPORT INFORMATION
  Report Type: Spontaneous
  Country: US (occurrence: US)
  Receive Date: 20150216
  Receipt Date: 20150216
  Transmission Date: 20150721
  Serious: No
  Sender: FDA-Public Use
  Company Number: US-ALLERGAN-1409598US

PATIENT
  Age: 69 Year
  Sex: Female

DRUGS (1)
  1. RESTASIS [Suspect]
     Active Substance: CYCLOSPORINE
     Indication: DRY EYE
     Dosage: 2 GTT, BID
     Route: 047
     Dates: start: 20140422, end: 20140506

REACTIONS (5)
  - Lip exfoliation [Recovered/Resolved]
  - Eyelid oedema [Recovered/Resolved]
  - Rash [Recovered/Resolved]
  - Lip swelling [Recovered/Resolved]
  - Eye oedema [Recovered/Resolved]

NARRATIVE: CASE EVENT DATE: 20140425
